FAERS Safety Report 9314175 (Version 1)
Quarter: 2013Q2

REPORT INFORMATION
  Report Type: Spontaneous
  Country: GB (occurrence: GB)
  Receive Date: 20130529
  Receipt Date: 20130529
  Transmission Date: 20140414
  Serious: Yes (Other)
  Sender: FDA-Public Use
  Company Number: GB-ACCORD-015219

PATIENT
  Age: 64 Year
  Sex: Male

DRUGS (7)
  1. VERAPAMIL [Suspect]
     Indication: ATRIAL FLUTTER
     Route: 048
  2. CLOPIDOGREL [Suspect]
     Indication: THROMBOCYTOPENIA
     Route: 048
  3. BISOPROLOL [Suspect]
     Indication: BLOOD PRESSURE MANAGEMENT
     Dosage: QD
     Route: 048
     Dates: start: 2011, end: 2012
  4. DOXORUBICIN [Concomitant]
     Indication: NON-HODGKIN^S LYMPHOMA
  5. PREDNISOLONE [Concomitant]
     Indication: NON-HODGKIN^S LYMPHOMA
  6. CYCLOPHOSPHAMIDE [Concomitant]
     Indication: NON-HODGKIN^S LYMPHOMA
  7. VINCRISTINE SULPHATE [Concomitant]
     Indication: NON-HODGKIN^S LYMPHOMA

REACTIONS (7)
  - Atrial flutter [Recovering/Resolving]
  - Abdominal pain upper [Recovering/Resolving]
  - Somnolence [Unknown]
  - Fatigue [Recovered/Resolved]
  - Dizziness [Recovered/Resolved]
  - Arthralgia [Unknown]
  - Off label use [Unknown]
